FAERS Safety Report 6467101-8 (Version None)
Quarter: 2009Q4

REPORT INFORMATION
  Report Type: 
  Country: None (occurrence: None)
  Receive Date: 20091202
  Receipt Date: 20091119
  Transmission Date: 20100525
  Serious: Yes (Other)
  Sender: FDA-Public Use
  Company Number: CA-PFIZER INC-2009283151

PATIENT
  Age: 18 Year
  Sex: Male

DRUGS (4)
  1. ZOLOFT [Suspect]
     Indication: DEPRESSION
     Dosage: 150 MG/DAY, AT BEDTIME
     Route: 048
     Dates: start: 20090406
  2. ZOLOFT [Suspect]
     Dosage: 100 MG, (2X50MG) AT BEDTIME
     Dates: start: 20090401, end: 20090601
  3. MINOCYCLINE [Concomitant]
     Indication: ACNE
     Dosage: 50 MG, 2X/DAY
     Route: 048
     Dates: start: 20081223, end: 20090708
  4. CELEXA [Concomitant]
     Indication: DEPRESSION
     Dosage: 20 MG, UNK

REACTIONS (2)
  - LIMB INJURY [None]
  - SENSORY LOSS [None]
